FAERS Safety Report 24344546 (Version 2)
Quarter: 2024Q4

REPORT INFORMATION
  Report Type: Spontaneous
  Country: RU (occurrence: RU)
  Receive Date: 20240920
  Receipt Date: 20241022
  Transmission Date: 20250115
  Serious: No
  Sender: GLENMARK
  Company Number: RU-GLENMARK PHARMACEUTICALS-2024GMK093994

PATIENT

DRUGS (5)
  1. RYALTRIS [Suspect]
     Active Substance: MOMETASONE FUROATE MONOHYDRATE\OLOPATADINE HYDROCHLORIDE
     Indication: Otitis externa
     Dosage: 1 DOSAGE FORM, BID, 1 INSUFLATION 2 TIMES A DAY FOR 2  WEEKS
     Route: 045
  2. RYALTRIS [Suspect]
     Active Substance: MOMETASONE FUROATE MONOHYDRATE\OLOPATADINE HYDROCHLORIDE
     Indication: Nasopharyngitis
  3. RIFAMYCIN SODIUM [Concomitant]
     Active Substance: RIFAMYCIN SODIUM
     Indication: Product used for unknown indication
     Dosage: UNK (FORMULATION: DROPS (UNSPECIFIED))
     Route: 065
  4. BICLOTYMOL [Concomitant]
     Active Substance: BICLOTYMOL
     Indication: Product used for unknown indication
     Dosage: UNK
     Route: 065
  5. CHAMOMILE [Concomitant]
     Active Substance: CHAMOMILE
     Indication: Product used for unknown indication
     Dosage: UNK
     Route: 065

REACTIONS (2)
  - Product use in unapproved indication [Unknown]
  - Contraindicated product administered [Unknown]

NARRATIVE: CASE EVENT DATE: 20240909
